FAERS Safety Report 4680837-4 (Version None)
Quarter: 2005Q2

REPORT INFORMATION
  Report Type: 
  Country: None (occurrence: None)
  Receive Date: 20050601
  Receipt Date: 20050526
  Transmission Date: 20051028
  Serious: Yes (Hospitalization)
  Sender: FDA-Public Use
  Company Number: TCI2005A02491

PATIENT
  Age: 81 Year
  Sex: Male

DRUGS (4)
  1. LEUPLIN SR FOR INJECTION KIT [Suspect]
     Indication: PROSTATE CANCER
     Dosage: 11.25 MG (11.25 MG, 1 IN 12 WK)
     Route: 058
     Dates: start: 20050330
  2. CASODEX [Suspect]
     Route: 048
  3. METHYCOBAL (MECOBALAMIN) [Concomitant]
  4. NEUROTROPIN (ORGAN LYSATE, STANDARDIZED) [Concomitant]

REACTIONS (1)
  - BONE MARROW DEPRESSION [None]
